FAERS Safety Report 8359691-5 (Version None)
Quarter: 2012Q2

REPORT INFORMATION
  Report Type: 
  Country: None (occurrence: None)
  Receive Date: 20120515
  Receipt Date: 20120514
  Transmission Date: 20120825
  Serious: No
  Sender: FDA-Public Use
  Company Number: US-BAYER-2012-047057

PATIENT
  Age: 61 Year
  Sex: Female

DRUGS (15)
  1. CIPROFLOXACIN [Concomitant]
     Dosage: 100 MG, UNK
  2. MAGNESIUM [Concomitant]
  3. HYDROCHLOROTHIAZIDE [Concomitant]
     Dosage: 25 MG, UNK
  4. WOMEN'S MULTI [Concomitant]
  5. MACRODANTIN [Concomitant]
  6. CALCIUM [Concomitant]
  7. CRANBERRY [Concomitant]
     Dosage: 200 MG, UNK
  8. VITAMIN D [Concomitant]
     Dosage: 400 IU, UNK
  9. GARLIC OIL [ALLIUM SATIVUM] [Concomitant]
  10. BETASERON [Suspect]
     Dosage: 0.25 MG, QOD
     Route: 058
  11. ZINC OXID [Concomitant]
  12. GLUCOSAMINE W/CHONDROITIN SULFATE [Concomitant]
     Dosage: 500 UNK, UNK
  13. FISH OIL [Concomitant]
  14. ASPIRIN [Concomitant]
     Dosage: 81 MG, UNK
  15. ULTRAM [Concomitant]
     Dosage: 50 MG, UNK

REACTIONS (1)
  - INFLUENZA LIKE ILLNESS [None]
